FAERS Safety Report 6262756-5 (Version None)
Quarter: 2009Q3

REPORT INFORMATION
  Report Type: 
  Country: None (occurrence: None)
  Receive Date: 20090709
  Receipt Date: 20090701
  Transmission Date: 20100115
  Serious: Yes (Hospitalization)
  Sender: FDA-Public Use
  Company Number: US-BAXTER-2009BH010244

PATIENT
  Sex: Male

DRUGS (4)
  1. DIANEAL [Suspect]
     Indication: PERITONEAL DIALYSIS
     Route: 033
     Dates: start: 20090128
  2. DIANEAL [Suspect]
     Route: 033
     Dates: end: 20080501
  3. DIANEAL [Suspect]
     Indication: PERITONEAL DIALYSIS
     Route: 033
     Dates: start: 20090128
  4. DIANEAL [Suspect]
     Route: 033
     Dates: end: 20080501

REACTIONS (3)
  - CELLULITIS [None]
  - HYPOTENSION [None]
  - INFECTION [None]
